FAERS Safety Report 25970014 (Version 2)
Quarter: 2025Q4

REPORT INFORMATION
  Report Type: Spontaneous
  Country: US (occurrence: None)
  Receive Date: 20251028
  Receipt Date: 20251215
  Transmission Date: 20260119
  Serious: No
  Sender: UCB
  Company Number: US-UCBSA-2025039472

PATIENT
  Age: 37 Year

DRUGS (3)
  1. BIMZELX [Suspect]
     Active Substance: BIMEKIZUMAB-BKZX
     Indication: Hidradenitis
     Dosage: 320 MILLIGRAM, EV 2 WEEKS(QOW)
  2. BIMZELX [Suspect]
     Active Substance: BIMEKIZUMAB-BKZX
     Dosage: 320 MILLIGRAM, EV 4 WEEKS
  3. HYRIMOZ [Concomitant]
     Active Substance: ADALIMUMAB-ADAZ
     Indication: Product used for unknown indication

REACTIONS (4)
  - Hidradenitis [Unknown]
  - Condition aggravated [Unknown]
  - Insurance issue [Unknown]
  - Therapy interrupted [Unknown]
